FAERS Safety Report 21555968 (Version 2)
Quarter: 2022Q4

REPORT INFORMATION
  Report Type: Report from Study
  Country: US (occurrence: None)
  Receive Date: 20221104
  Receipt Date: 20221227
  Transmission Date: 20230113
  Serious: Yes (Hospitalization)
  Sender: FDA-Public Use
  Company Number: US-ROCHE-3210347

PATIENT
  Age: 68 Year
  Sex: Female
  Weight: 93.8 kg

DRUGS (6)
  1. ATEZOLIZUMAB [Suspect]
     Active Substance: ATEZOLIZUMAB
     Indication: Myelodysplastic syndrome
     Route: 041
     Dates: start: 20220909, end: 20220909
  2. ALLOPURINOL [Concomitant]
     Active Substance: ALLOPURINOL
     Route: 048
  3. JADENU [Concomitant]
     Active Substance: DEFERASIROX
     Route: 048
  4. NEURONTIN [Concomitant]
     Active Substance: GABAPENTIN
     Route: 048
  5. ZESTRIL [Concomitant]
     Active Substance: LISINOPRIL
     Route: 048
  6. ENTOCORT EC [Concomitant]
     Active Substance: BUDESONIDE
     Dosage: EVERY MORNING
     Route: 048

REACTIONS (4)
  - Dizziness [Unknown]
  - Diarrhoea [Unknown]
  - Abdominal discomfort [Unknown]
  - Presyncope [Unknown]

NARRATIVE: CASE EVENT DATE: 20221026
